FAERS Safety Report 6914254-0 (Version None)
Quarter: 2010Q3

REPORT INFORMATION
  Report Type: 
  Country: None (occurrence: None)
  Receive Date: 20100809
  Receipt Date: 20100803
  Transmission Date: 20110219
  Serious: Yes (Other)
  Sender: FDA-Public Use
  Company Number: A0873843A

PATIENT
  Sex: Female

DRUGS (8)
  1. TYKERB [Suspect]
     Dosage: 1250MG PER DAY
     Route: 048
     Dates: start: 20100319
  2. XELODA [Suspect]
     Route: 065
  3. GLYBURIDE [Concomitant]
     Route: 065
  4. METFORMIN HCL [Concomitant]
     Route: 065
  5. ACTOS [Concomitant]
     Route: 065
  6. SYNTHROID [Concomitant]
     Route: 065
  7. LISINOPRIL [Concomitant]
     Route: 065
  8. DULCOLAX [Concomitant]
     Route: 065

REACTIONS (4)
  - BURNING SENSATION [None]
  - ERYTHEMA [None]
  - PALMAR-PLANTAR ERYTHRODYSAESTHESIA SYNDROME [None]
  - SKIN EXFOLIATION [None]
